FAERS Safety Report 8345243 (Version 5)
Quarter: 2012Q4

REPORT INFORMATION
  Report Type: 
  Country: SG (occurrence: SG)
  Receive Date: 20120120
  Receipt Date: 20121001
  Transmission Date: 20130627
  Serious: Yes (Other)
  Sender: FDA-Public Use
  Company Number: SG-JNJFOC-20120106873

PATIENT
  Age: 65 Year
  Sex: Female

DRUGS (2)
  1. STELARA [Suspect]
     Indication: PSORIASIS
     Dosage: Weeks 0 and 4
     Route: 058
     Dates: start: 20120113
  2. STELARA [Suspect]
     Indication: PSORIASIS
     Dosage: second dose
     Route: 058
     Dates: start: 20120210

REACTIONS (1)
  - Psoriatic arthropathy [Recovered/Resolved]
